FAERS Safety Report 24714946 (Version 2)
Quarter: 2024Q4

REPORT INFORMATION
  Report Type: Spontaneous
  Country: GR (occurrence: GR)
  Receive Date: 20241210
  Receipt Date: 20241227
  Transmission Date: 20250114
  Serious: Yes (Other)
  Sender: NOVARTIS
  Company Number: GR-002147023-NVSC2024GR233526

PATIENT
  Sex: Male

DRUGS (1)
  1. PLUVICTO [Suspect]
     Active Substance: LUTETIUM LU-177 VIPIVOTIDE TETRAXETAN
     Indication: Product used for unknown indication
     Dosage: UNK (DOSES ADMINISTERED 5/6)
     Route: 065
     Dates: end: 20241030

REACTIONS (3)
  - Disease progression [Unknown]
  - Prostatic specific antigen increased [Unknown]
  - Skin lesion [Unknown]
